FAERS Safety Report 10258036 (Version 1)
Quarter: 2014Q2

REPORT INFORMATION
  Report Type: Spontaneous
  Country: US (occurrence: None)
  Receive Date: 20140623
  Receipt Date: 20140623
  Transmission Date: 20141212
  Serious: Yes (Hospitalization)
  Sender: FDA-Public Use
  Company Number: UTC-046815

PATIENT
  Age: 67 Year
  Sex: Female

DRUGS (2)
  1. REMODULIN (TREPROSTINIL SODIUM) INJECTION, 2.5MG/ML [Suspect]
     Indication: PULMONARY ARTERIAL HYPERTENSION
     Route: 041
     Dates: start: 20090804
  2. REVATIO (SILDENAFIL CITRATE) [Concomitant]

REACTIONS (2)
  - Hypernatraemia [None]
  - Hypotension [None]
